FAERS Safety Report 8584251-0 (Version None)
Quarter: 2012Q3

REPORT INFORMATION
  Report Type: 
  Country: None (occurrence: None)
  Receive Date: 20120810
  Receipt Date: 20120803
  Transmission Date: 20120928
  Serious: No
  Sender: FDA-Public Use
  Company Number: US-009507513-1208USA002420

PATIENT

DRUGS (1)
  1. MAXALT-MLT [Suspect]
     Indication: MIGRAINE
     Dosage: UNK
     Route: 060
     Dates: start: 20070101

REACTIONS (2)
  - VOMITING [None]
  - PRODUCT TASTE ABNORMAL [None]
